FAERS Safety Report 9067033 (Version 1)
Quarter: 2013Q1

REPORT INFORMATION
  Report Type: Report from Study
  Country: FR (occurrence: FR)
  Receive Date: 20130214
  Receipt Date: 20130214
  Transmission Date: 20140127
  Serious: Yes (Hospitalization)
  Sender: FDA-Public Use
  Company Number: FR-ROCHE-1190404

PATIENT
  Age: 64 Year
  Sex: Female
  Weight: 52.5 kg

DRUGS (37)
  1. TOCILIZUMAB [Suspect]
     Indication: RHEUMATOID ARTHRITIS
     Route: 042
     Dates: start: 20100607
  2. TOCILIZUMAB [Suspect]
     Route: 042
     Dates: start: 20100705
  3. TOCILIZUMAB [Suspect]
     Route: 042
     Dates: start: 20100811
  4. TOCILIZUMAB [Suspect]
     Route: 042
     Dates: start: 20100914
  5. TOCILIZUMAB [Suspect]
     Route: 042
     Dates: start: 20101005
  6. TOCILIZUMAB [Suspect]
     Route: 042
     Dates: start: 20101119
  7. TOCILIZUMAB [Suspect]
     Route: 042
     Dates: start: 20101217
  8. TOCILIZUMAB [Suspect]
     Route: 042
     Dates: start: 20110308
  9. TOCILIZUMAB [Suspect]
     Route: 042
     Dates: start: 20110506
  10. TOCILIZUMAB [Suspect]
     Route: 042
     Dates: start: 20110530
  11. TOCILIZUMAB [Suspect]
     Route: 042
     Dates: start: 20110630
  12. TOCILIZUMAB [Suspect]
     Route: 042
     Dates: start: 20110725
  13. TOCILIZUMAB [Suspect]
     Route: 042
     Dates: start: 20110829
  14. TOCILIZUMAB [Suspect]
     Route: 042
     Dates: start: 20110929
  15. TOCILIZUMAB [Suspect]
     Route: 042
     Dates: start: 20111028
  16. TOCILIZUMAB [Suspect]
     Route: 042
     Dates: start: 20111112
  17. TOCILIZUMAB [Suspect]
     Route: 042
     Dates: start: 20111220
  18. TOCILIZUMAB [Suspect]
     Route: 042
     Dates: start: 20120123
  19. TOCILIZUMAB [Suspect]
     Route: 042
     Dates: start: 20120220
  20. TOCILIZUMAB [Suspect]
     Route: 042
     Dates: start: 20120323
  21. TOCILIZUMAB [Suspect]
     Route: 042
     Dates: start: 20120504
  22. TOCILIZUMAB [Suspect]
     Route: 042
     Dates: start: 20120612
  23. METHOTREXATE [Concomitant]
     Dosage: 10 MG/WEEK
     Route: 065
  24. CORTANCYL [Concomitant]
     Route: 065
  25. NEO-MERCAZOLE [Concomitant]
     Route: 065
  26. LEVOTHYROX [Concomitant]
     Route: 065
  27. CRESTOR [Concomitant]
     Route: 065
  28. TENORMINE [Concomitant]
     Route: 065
  29. PROPOFAN [Concomitant]
     Dosage: 2 TO 6 TABLETS
     Route: 065
  30. COTAREG [Concomitant]
     Route: 065
  31. SPECIAFOLDINE [Concomitant]
     Dosage: 2 TABLETS/WEEK
     Route: 065
  32. ZESTRIL [Concomitant]
     Route: 065
  33. KARDEGIC [Concomitant]
     Route: 065
  34. ACTONEL [Concomitant]
     Route: 065
  35. LERCAN [Concomitant]
     Route: 065
  36. EUPRESSYL [Concomitant]
     Route: 065
  37. GLUCOPHAGE [Concomitant]
     Route: 065

REACTIONS (5)
  - Umbilical hernia [Recovered/Resolved]
  - Cardiac murmur [Recovered/Resolved]
  - Bronchitis [Recovered/Resolved]
  - Keratitis [Recovered/Resolved]
  - Tooth abscess [Recovered/Resolved]
